FAERS Safety Report 5037043-3 (Version None)
Quarter: 2006Q2

REPORT INFORMATION
  Report Type: 
  Country: None (occurrence: None)
  Receive Date: 20060623
  Receipt Date: 20060609
  Transmission Date: 20061013
  Serious: Yes (Hospitalization)
  Sender: FDA-Public Use
  Company Number: 2006074485

PATIENT
  Age: 14 Year
  Sex: Female

DRUGS (1)
  1. GENOTROPIN [Suspect]
     Indication: TURNER'S SYNDROME
     Dosage: 1.4 MG (1.4 MG, DAILY INTERVAL:  EVERY DAY), SUBCUTANEOUS
     Route: 058
     Dates: start: 20051101, end: 20060427

REACTIONS (2)
  - EYE SWELLING [None]
  - URTICARIA [None]
